FAERS Safety Report 16055098 (Version 1)
Quarter: 2019Q1

REPORT INFORMATION
  Report Type: Spontaneous
  Country: JP (occurrence: JP)
  Receive Date: 20190310
  Receipt Date: 20190310
  Transmission Date: 20190418
  Serious: Yes (Hospitalization, Other)
  Sender: FDA-Public Use
  Company Number: JP-009507513-1903JPN000144J

PATIENT
  Age: 85 Year
  Sex: Female

DRUGS (2)
  1. JANUVIA [Suspect]
     Active Substance: SITAGLIPTIN PHOSPHATE
     Dosage: 50 MILLIGRAM
     Route: 048
  2. DAONIL [Concomitant]
     Active Substance: GLYBURIDE
     Dosage: 2.5 MILLIGRAM
     Route: 065

REACTIONS (1)
  - Hypoglycaemic coma [Recovered/Resolved]
